FAERS Safety Report 14163808 (Version 2)
Quarter: 2018Q2

REPORT INFORMATION
  Report Type: Spontaneous
  Country: US (occurrence: US)
  Receive Date: 20171106
  Receipt Date: 20180516
  Transmission Date: 20180711
  Serious: No
  Sender: FDA-Public Use
  Company Number: US-MYLANLABS-2017M1069738

PATIENT
  Age: 70 Year
  Sex: Female
  Weight: 57 kg

DRUGS (1)
  1. RIMSO-50 [Suspect]
     Active Substance: DIMETHYL SULFOXIDE
     Indication: CYSTITIS INTERSTITIAL
     Dosage: UNK
     Route: 043

REACTIONS (2)
  - Eructation [Recovered/Resolved]
  - Dysgeusia [Recovered/Resolved]

NARRATIVE: CASE EVENT DATE: 20171003
